FAERS Safety Report 15149960 (Version 1)
Quarter: 2018Q4

REPORT INFORMATION
  Report Type: Spontaneous
  Country: FR (occurrence: FR)
  Receive Date: 20180716
  Receipt Date: 20180716
  Transmission Date: 20190204
  Serious: No
  Sender: FDA-Public Use
  Company Number: FR-B. BRAUN MEDICAL INC.-2052128

PATIENT
  Age: 86 Year
  Sex: Female
  Weight: 59.2 kg

DRUGS (5)
  1. METRONIDAZOLE INJECTION USP (5 MG/ML) IN PAB? PLASTIC CONTAINER (NDA 0 [Suspect]
     Active Substance: METRONIDAZOLE
     Indication: SEPSIS
     Route: 042
     Dates: start: 20161206, end: 20161210
  2. CEFOTAXIME [Suspect]
     Active Substance: CEFOTAXIME SODIUM
     Route: 041
     Dates: start: 20161205, end: 20161210
  3. INNOHEP [Concomitant]
     Active Substance: TINZAPARIN SODIUM
  4. PARACETAMOL [Concomitant]
     Active Substance: ACETAMINOPHEN
  5. KEPPRA [Concomitant]
     Active Substance: LEVETIRACETAM

REACTIONS (1)
  - Rash [Not Recovered/Not Resolved]

NARRATIVE: CASE EVENT DATE: 20161210
